FAERS Safety Report 14170542 (Version 2)
Quarter: 2018Q1

REPORT INFORMATION
  Report Type: Spontaneous
  Country: US (occurrence: US)
  Receive Date: 20171108
  Receipt Date: 20180302
  Transmission Date: 20180508
  Serious: Yes (Other)
  Sender: FDA-Public Use
  Company Number: US-BEH-2017084785

PATIENT
  Age: 2 Year
  Sex: Male

DRUGS (9)
  1. AFSTYLA ANTIHEMOPHILIC FACTOR (RECOMBINANT), SINGLE CHAIN [Suspect]
     Active Substance: ANTIHEMOPHILIC FACTOR, HUMAN RECOMBINANT
     Indication: HAEMORRHAGE PROPHYLAXIS
     Dosage: 865 IU, TWICE A WEEK VIA PORT
     Route: 042
     Dates: start: 201704
  2. ADVATE [Suspect]
     Active Substance: ANTIHEMOPHILIC FACTOR, HUMAN RECOMBINANT
     Dosage: ON DEMAND
     Route: 065
     Dates: start: 20161108
  3. ANTIHEMOPHILIC FACTOR              /00286701/ [Suspect]
     Active Substance: ANTIHEMOPHILIC FACTOR HUMAN
     Indication: FACTOR VIII DEFICIENCY
     Dosage: 1 DOSE
     Route: 065
     Dates: start: 20170220, end: 20170220
  4. ADVATE [Suspect]
     Active Substance: ANTIHEMOPHILIC FACTOR, HUMAN RECOMBINANT
     Dosage: ON DEMAND
     Route: 065
     Dates: start: 201605
  5. ADVATE [Suspect]
     Active Substance: ANTIHEMOPHILIC FACTOR, HUMAN RECOMBINANT
     Dosage: PROPHYLAXIS, EVERY OTHER DAY
     Route: 065
     Dates: start: 20170122, end: 20170220
  6. ADVATE [Suspect]
     Active Substance: ANTIHEMOPHILIC FACTOR, HUMAN RECOMBINANT
     Dosage: ON DEMAND
     Route: 065
     Dates: start: 201611
  7. ADVATE [Suspect]
     Active Substance: ANTIHEMOPHILIC FACTOR, HUMAN RECOMBINANT
     Indication: FACTOR VIII DEFICIENCY
     Dosage: ON DEMAND
     Route: 065
     Dates: start: 20170626
  8. ADVATE [Suspect]
     Active Substance: ANTIHEMOPHILIC FACTOR, HUMAN RECOMBINANT
     Dosage: ON DEMAND
     Route: 065
     Dates: start: 20170112, end: 20170122
  9. AFSTYLA ANTIHEMOPHILIC FACTOR (RECOMBINANT), SINGLE CHAIN [Suspect]
     Active Substance: ANTIHEMOPHILIC FACTOR, HUMAN RECOMBINANT
     Indication: FACTOR VIII DEFICIENCY
     Dosage: 750 IU, TWICE A WEEK VIA PORT
     Route: 042
     Dates: start: 20170223

REACTIONS (5)
  - Anti factor VIII antibody positive [Recovered/Resolved]
  - Haemorrhage [Recovered/Resolved]
  - Joint microhaemorrhage [Recovered/Resolved]
  - Haematoma [Recovered/Resolved]
  - Head injury [Unknown]

NARRATIVE: CASE EVENT DATE: 201710
